FAERS Safety Report 15588116 (Version 3)
Quarter: 2018Q4

REPORT INFORMATION
  Report Type: Spontaneous
  Country: CN (occurrence: CN)
  Receive Date: 20181105
  Receipt Date: 20181121
  Transmission Date: 20190205
  Serious: Yes (Hospitalization)
  Sender: FDA-Public Use
  Company Number: CN-SHIRE-CN201840989

PATIENT

DRUGS (3)
  1. HUMAN ALBUMIN [Suspect]
     Active Substance: ALBUMIN HUMAN
     Dosage: 10 G
     Route: 042
     Dates: start: 20181016, end: 20181016
  2. HUMAN ALBUMIN [Suspect]
     Active Substance: ALBUMIN HUMAN
     Dosage: 10 G
     Route: 042
     Dates: start: 20181018, end: 20181018
  3. HUMAN ALBUMIN [Suspect]
     Active Substance: ALBUMIN HUMAN
     Indication: HYPOPROTEINAEMIA
     Dosage: 10 G
     Route: 042
     Dates: start: 20181014, end: 20181014

REACTIONS (1)
  - Drug ineffective [Unknown]
